FAERS Safety Report 24365750 (Version 3)
Quarter: 2024Q4

REPORT INFORMATION
  Report Type: Spontaneous
  Country: DE (occurrence: DE)
  Receive Date: 20240926
  Receipt Date: 20241008
  Transmission Date: 20250114
  Serious: Yes (Other)
  Sender: AUROBINDO
  Company Number: DE-BRISTOL-MYERS SQUIBB COMPANY-2024-141611

PATIENT
  Age: 59 Year
  Sex: Female
  Weight: 68.7 kg

DRUGS (36)
  1. CARBOPLATIN [Suspect]
     Active Substance: CARBOPLATIN
     Indication: Non-small cell lung cancer
     Dosage: UNK [DOSE: 6 AUC - MG/MIN*ML]
     Route: 042
     Dates: start: 20240719
  2. CARBOPLATIN [Suspect]
     Active Substance: CARBOPLATIN
     Dosage: UNK [DOSE: 6 AUC - MG/MIN*ML]
     Route: 042
     Dates: start: 20240809
  3. CARBOPLATIN [Suspect]
     Active Substance: CARBOPLATIN
     Dosage: UNK [DOSE: 6 AUC - MG/MIN*ML]
     Route: 042
     Dates: start: 20240830
  4. PACLITAXEL [Suspect]
     Active Substance: PACLITAXEL
     Indication: Non-small cell lung cancer
     Dosage: 200 MILLIGRAM/SQ. METER
     Route: 042
     Dates: start: 20240719
  5. PACLITAXEL [Suspect]
     Active Substance: PACLITAXEL
     Dosage: 200 MILLIGRAM/SQ. METER
     Route: 042
     Dates: start: 20240809
  6. PACLITAXEL [Suspect]
     Active Substance: PACLITAXEL
     Dosage: 200 MILLIGRAM/SQ. METER
     Route: 042
     Dates: start: 20240830
  7. PREGABALIN [Suspect]
     Active Substance: PREGABALIN
     Indication: Pain
     Dosage: 150 MILLIGRAM, ONCE A DAY
     Route: 048
     Dates: start: 20240828, end: 20240829
  8. PREGABALIN [Suspect]
     Active Substance: PREGABALIN
     Dosage: 150 MILLIGRAM, TWO TIMES A DAY
     Route: 048
     Dates: start: 20240830, end: 20240905
  9. NIVOLUMAB [Suspect]
     Active Substance: NIVOLUMAB
     Indication: Non-small cell lung cancer
     Dosage: 360 MILLIGRAM, CYCLICAL [FREQUENCY: 21 DAYS/CYCLEFOR 3 CYCLES]
     Route: 042
     Dates: start: 20240719
  10. APREPITANT [Concomitant]
     Active Substance: APREPITANT
     Indication: Prophylaxis
     Dosage: 125 MILLIGRAM (PER CYCLE)
     Route: 048
     Dates: start: 20240719, end: 20240719
  11. APREPITANT [Concomitant]
     Active Substance: APREPITANT
     Dosage: 80 MILLIGRAM (PER CYCLE)
     Route: 048
     Dates: start: 20240720, end: 20240721
  12. APREPITANT [Concomitant]
     Active Substance: APREPITANT
     Dosage: 125 MILLIGRAM (PER CYCLE)
     Route: 048
     Dates: start: 20240830, end: 20240830
  13. APREPITANT [Concomitant]
     Active Substance: APREPITANT
     Dosage: 80 MILLIGRAM (PER CYCLE)
     Route: 048
     Dates: start: 20240831, end: 20240901
  14. Cimetidin [Concomitant]
     Indication: Prophylaxis
     Dosage: 200 MILLIGRAM (PER CYCLE)
     Route: 042
     Dates: start: 20240719, end: 20240719
  15. Cimetidin [Concomitant]
     Dosage: 200 MILLIGRAM (PER CYCLE)
     Route: 042
     Dates: start: 20240809, end: 20240809
  16. DIMETHINDENE [Concomitant]
     Active Substance: DIMETHINDENE
     Indication: Prophylaxis
     Dosage: 4 MILLIGRAM (PER CYCLE)
     Route: 042
     Dates: start: 20240719, end: 20240719
  17. DIMETHINDENE [Concomitant]
     Active Substance: DIMETHINDENE
     Dosage: 4 MILLIGRAM (PER CYCLE)
     Route: 042
     Dates: start: 20240809, end: 20240809
  18. DEXAMETHASONE [Concomitant]
     Active Substance: DEXAMETHASONE
     Indication: Prophylaxis
     Dosage: 12 MILLIGRAM
     Route: 042
     Dates: start: 20240719, end: 20240719
  19. DEXAMETHASONE [Concomitant]
     Active Substance: DEXAMETHASONE
     Dosage: 8 MILLIGRAM (PER CYCLE)
     Route: 048
     Dates: start: 20240720, end: 20240721
  20. DEXAMETHASONE [Concomitant]
     Active Substance: DEXAMETHASONE
     Dosage: 12 MILLIGRAM (PER CYCLE)
     Route: 042
     Dates: start: 20240809, end: 20240809
  21. DEXAMETHASONE [Concomitant]
     Active Substance: DEXAMETHASONE
     Dosage: 8 MILLIGRAM (PER CYCLE)
     Route: 048
     Dates: start: 20240831, end: 20240901
  22. DEXAMETHASONE [Concomitant]
     Active Substance: DEXAMETHASONE
     Dosage: 12 MILLIGRAM (PER CYCLE)
     Route: 042
     Dates: start: 20240830, end: 20240830
  23. ESTRADIOL [Concomitant]
     Active Substance: ESTRADIOL
     Indication: Menopause
     Dosage: 0.1 PERCENT, ONCE A DAY
     Route: 061
  24. FENOTEROL HYDROBROMIDE\IPRATROPIUM BROMIDE [Concomitant]
     Active Substance: FENOTEROL HYDROBROMIDE\IPRATROPIUM BROMIDE
     Indication: Asthma
     Dosage: 50 MICROGRAM, AS NECESSARY [INHALATIVEFREQUENCY: P.R.N. (AS NEEDED)]
     Dates: start: 1991
  25. FLUTICASONE FUROATE\UMECLIDINIUM BROMIDE\VILANTEROL TRIFENATATE [Concomitant]
     Active Substance: FLUTICASONE FUROATE\UMECLIDINIUM BROMIDE\VILANTEROL TRIFENATATE
     Indication: Chronic obstructive pulmonary disease
     Dosage: 92 MICROGRAM, ONCE A DAY
     Dates: start: 2010
  26. FILGRASTIM [Concomitant]
     Active Substance: FILGRASTIM
     Indication: Prophylaxis
     Dosage: 30 INTERNATIONAL UNIT (PER CYCLE)
     Route: 042
     Dates: start: 20240722, end: 20240726
  27. FILGRASTIM [Concomitant]
     Active Substance: FILGRASTIM
     Dosage: 30 INTERNATIONAL UNIT (PER CYCLE)
     Route: 058
     Dates: start: 20240815, end: 20240819
  28. FILGRASTIM [Concomitant]
     Active Substance: FILGRASTIM
     Dosage: 3 INTERNATIONAL UNIT (PER CYCLE)
     Route: 058
     Dates: start: 20240906, end: 20240910
  29. GRANISETRON [Concomitant]
     Active Substance: GRANISETRON
     Indication: Prophylaxis
     Dosage: 1 MILLIGRAM (PER CYCLE)
     Route: 042
     Dates: start: 20240719, end: 20240719
  30. GRANISETRON [Concomitant]
     Active Substance: GRANISETRON
     Dosage: 2 MILLIGRAM (PER CYCLE)
     Route: 048
     Dates: start: 20240720, end: 20240720
  31. GRANISETRON [Concomitant]
     Active Substance: GRANISETRON
     Dosage: 1 MILLIGRAM (PER CYCLE)
     Route: 042
     Dates: start: 20240809, end: 20240809
  32. GRANISETRON [Concomitant]
     Active Substance: GRANISETRON
     Dosage: 2 MILLIGRAM (PER CYCLE)
     Route: 048
     Dates: start: 20240831, end: 20240901
  33. ACETAMINOPHEN [Concomitant]
     Active Substance: ACETAMINOPHEN
     Indication: Prophylaxis
     Dosage: 1000 MILLIGRAM
     Route: 042
     Dates: start: 20240719, end: 20240719
  34. ACETAMINOPHEN [Concomitant]
     Active Substance: ACETAMINOPHEN
     Dosage: 1000 MILLIGRAM (PER CYCLE)
     Route: 042
     Dates: start: 20240809, end: 20240809
  35. PROGESTERONE [Concomitant]
     Active Substance: PROGESTERONE
     Indication: Menopause
     Dosage: 100 MILLIGRAM, ONCE A DAY
     Route: 048
  36. ROSUVASTATIN [Concomitant]
     Active Substance: ROSUVASTATIN
     Indication: Hypercholesterolaemia
     Dosage: 10 MILLIGRAM, ONCE A DAY
     Route: 048
     Dates: start: 2023

REACTIONS (7)
  - Neuropathy peripheral [Recovered/Resolved]
  - Alopecia [Not Recovered/Not Resolved]
  - Dizziness [Recovered/Resolved]
  - Arthralgia [Recovered/Resolved]
  - Breast pain [Recovered/Resolved]
  - Neck pain [Recovered/Resolved]
  - Pain in extremity [Recovering/Resolving]

NARRATIVE: CASE EVENT DATE: 20240803
